FAERS Safety Report 8184545-7 (Version None)
Quarter: 2012Q1

REPORT INFORMATION
  Report Type: 
  Country: None (occurrence: None)
  Receive Date: 20120210
  Receipt Date: 20110722
  Transmission Date: 20120608
  Serious: Yes (Hospitalization)
  Sender: FDA-Public Use
  Company Number: 2011BH021395

PATIENT
  Age: 22 Year
  Sex: Female
  Weight: 61 kg

DRUGS (5)
  1. ONDANSETRON [Concomitant]
  2. NORCO [Concomitant]
  3. IFEX/MESNEX KIT [Suspect]
     Indication: DIFFUSE LARGE B-CELL LYMPHOMA
     Dosage: 8600 MG;1X;IV
     Route: 042
     Dates: start: 20110610, end: 20110611
  4. ENOXAPARIN [Concomitant]
  5. ALLOPURINOL [Concomitant]

REACTIONS (4)
  - AGGRESSION [None]
  - DELUSION [None]
  - AGITATION [None]
  - THINKING ABNORMAL [None]
